FAERS Safety Report 10067366 (Version 1)
Quarter: 2014Q2

REPORT INFORMATION
  Report Type: Spontaneous
  Country: IR (occurrence: None)
  Receive Date: 20140407
  Receipt Date: 20140407
  Transmission Date: 20141212
  Serious: Yes (Hospitalization)
  Sender: FDA-Public Use
  Company Number: 2014P1002763

PATIENT
  Age: 27 Year
  Sex: Male

DRUGS (3)
  1. ALPRAZOLAM [Suspect]
     Route: 048
  2. CLONIDINE [Suspect]
     Route: 048
  3. CLONAZEPAM [Suspect]
     Route: 048

REACTIONS (12)
  - Loss of consciousness [None]
  - Agitation [None]
  - Heart rate decreased [None]
  - Electrocardiogram QRS complex prolonged [None]
  - Electrocardiogram QT prolonged [None]
  - Electrocardiogram PR prolongation [None]
  - Respiratory rate decreased [None]
  - Respiratory acidosis [None]
  - Metabolic alkalosis [None]
  - Bradycardia [None]
  - Hallucinations, mixed [None]
  - Hypotension [None]
